FAERS Safety Report 23079224 (Version 2)
Quarter: 2023Q4

REPORT INFORMATION
  Report Type: Spontaneous
  Country: US (occurrence: US)
  Receive Date: 20231018
  Receipt Date: 20231019
  Transmission Date: 20240109
  Serious: Yes (Other)
  Sender: FDA-Public Use
  Company Number: US-PFIZER INC-PV202300166504

PATIENT
  Age: 73 Year
  Sex: Female
  Weight: 100.5 kg

DRUGS (3)
  1. IBRANCE [Suspect]
     Active Substance: PALBOCICLIB
     Indication: Breast cancer female
     Dosage: DAILY FOR 21 DAYS, 7 DAYS OFF
     Route: 048
     Dates: start: 20230908, end: 20230912
  2. NITROGLYCERIN [Concomitant]
     Active Substance: NITROGLYCERIN
     Indication: Chest pain
     Dosage: 0.4 MG (PLACE 1 TABLET UNDER THE TONGUE EVERY 5 MINUTES AS NEEDED FOR CHEST PAIN. - SUBLINGUAL)
     Route: 060
  3. LETROZOLE [Concomitant]
     Active Substance: LETROZOLE
     Dosage: UNK UNK, DAILY

REACTIONS (1)
  - Knee operation [Unknown]
